FAERS Safety Report 20154521 (Version 1)
Quarter: 2021Q4

REPORT INFORMATION
  Report Type: Report from Study
  Country: DE (occurrence: DE)
  Receive Date: 20211207
  Receipt Date: 20211207
  Transmission Date: 20220303
  Serious: Yes (Hospitalization)
  Sender: FDA-Public Use
  Company Number: DE-SA-SAC20211119000024

PATIENT
  Age: 65 Year
  Sex: Male
  Weight: 113 kg

DRUGS (10)
  1. ISATUXIMAB [Suspect]
     Active Substance: ISATUXIMAB
     Indication: Plasma cell myeloma
     Dosage: 10 MG/M2, QOW
     Route: 042
     Dates: start: 20190325, end: 20190325
  2. ISATUXIMAB [Suspect]
     Active Substance: ISATUXIMAB
     Dosage: 10 MG/M2, QW
     Route: 042
     Dates: start: 20181203, end: 20181203
  3. LENALIDOMIDE [Suspect]
     Active Substance: LENALIDOMIDE
     Indication: Plasma cell myeloma
     Dosage: 10 MG, QD
     Route: 048
     Dates: start: 20211112, end: 20211112
  4. LENALIDOMIDE [Suspect]
     Active Substance: LENALIDOMIDE
     Dosage: 10 MG, QD
     Route: 048
     Dates: start: 20181203, end: 20181203
  5. BORTEZOMIB [Suspect]
     Active Substance: BORTEZOMIB
     Indication: Plasma cell myeloma
     Dosage: 1.3 MG/M2, OTHER
     Route: 058
     Dates: start: 20190328, end: 20190328
  6. BORTEZOMIB [Suspect]
     Active Substance: BORTEZOMIB
     Dosage: 1.3 MG/M2, OTHER
     Route: 058
     Dates: start: 20181203, end: 20181203
  7. DEXAMETHASONE [Suspect]
     Active Substance: DEXAMETHASONE
     Indication: Plasma cell myeloma
     Dosage: 20 MG, QW
     Route: 048
     Dates: start: 20191112, end: 20191112
  8. DEXAMETHASONE [Suspect]
     Active Substance: DEXAMETHASONE
     Dosage: 20 MG; DAYS 1-2, 4-5, 8-9, 11-12, 15; 22-23, 25-26, 29-30, 32-33
     Route: 048
     Dates: start: 20181203, end: 20181203
  9. ELIQUIS [Concomitant]
     Active Substance: APIXABAN
     Indication: Pulmonary embolism
     Dosage: 5 MG, BID
     Dates: start: 20201021, end: 20211112
  10. CANDESARTAN CILEXETIL\HYDROCHLOROTHIAZIDE [Concomitant]
     Active Substance: CANDESARTAN CILEXETIL\HYDROCHLOROTHIAZIDE
     Indication: Hypertension
     Dosage: 16.5 MG/12.5 MG, QD
     Dates: start: 20210929, end: 20211112

REACTIONS (1)
  - Pneumonia pneumococcal [Recovered/Resolved]

NARRATIVE: CASE EVENT DATE: 20211112
